FAERS Safety Report 25606619 (Version 3)
Quarter: 2025Q3

REPORT INFORMATION
  Report Type: Spontaneous
  Country: US (occurrence: US)
  Receive Date: 20250725
  Receipt Date: 20250825
  Transmission Date: 20251020
  Serious: No
  Sender: VERTEX
  Company Number: US-VERTEX PHARMACEUTICALS-2025-011859

PATIENT
  Sex: Male

DRUGS (4)
  1. TRIKAFTA [Suspect]
     Active Substance: ELEXACAFTOR\IVACAFTOR\TEZACAFTOR
     Indication: Cystic fibrosis
     Dosage: 2 ORANGE TABS (50 MG ELEXA/ 25 MG TEZA/ 75 MG IVA) AM, 01 BLUE TAB (75 MG IVA) PM
     Route: 048
     Dates: start: 202107, end: 2022
  2. TRIKAFTA [Suspect]
     Active Substance: ELEXACAFTOR\IVACAFTOR\TEZACAFTOR
     Dosage: 2 ORANGE TAB (50 MG ELEXA/ 25 MG TEZA/ 75 MG IVA) ALTERNATING WITH 01 ORANGE TAB WITHOUT BLUE TAB
     Route: 048
     Dates: start: 202208
  3. TRIKAFTA [Suspect]
     Active Substance: ELEXACAFTOR\IVACAFTOR\TEZACAFTOR
     Dosage: 01 ORANGE TAB (50 MG ELEXA/ 25 MG TEZA/ 75 MG IVA) EVERY OTHER DAY WITHOUT BLUE TAB
     Route: 048
     Dates: start: 202402, end: 2024
  4. TRIKAFTA [Suspect]
     Active Substance: ELEXACAFTOR\IVACAFTOR\TEZACAFTOR
     Dosage: 1 ORANGE TAB (100 MG ELEXA/ 50 MG TEZA/ 75 MG IVA AND 150 MG IVA) EVERY OTHER DAY WITHOUT BLUE TAB
     Route: 048
     Dates: start: 20240424, end: 20250719

REACTIONS (1)
  - Liver function test increased [Unknown]

NARRATIVE: CASE EVENT DATE: 20240101
